FAERS Safety Report 8136770-9 (Version None)
Quarter: 2012Q1

REPORT INFORMATION
  Report Type: 
  Country: None (occurrence: None)
  Receive Date: 20120214
  Receipt Date: 20120208
  Transmission Date: 20120608
  Serious: Yes (Other)
  Sender: FDA-Public Use
  Company Number: US-PFIZER INC-2012034481

PATIENT
  Age: 19 Year
  Sex: Female

DRUGS (1)
  1. DEPO-PROVERA [Suspect]
     Dosage: UNK

REACTIONS (5)
  - ANXIETY [None]
  - DEPRESSION [None]
  - WEIGHT INCREASED [None]
  - SUICIDE ATTEMPT [None]
  - ALOPECIA [None]
